FAERS Safety Report 21279694 (Version 1)
Quarter: 2022Q3

REPORT INFORMATION
  Report Type: Spontaneous
  Country: US (occurrence: US)
  Receive Date: 20220901
  Receipt Date: 20220901
  Transmission Date: 20221027
  Serious: Yes (Hospitalization)
  Sender: FDA-Public Use
  Company Number: US-STRIDES ARCOLAB LIMITED-2022SP006050

PATIENT
  Age: 78 Year
  Sex: Male

DRUGS (6)
  1. LOPERAMIDE [Suspect]
     Active Substance: LOPERAMIDE
     Indication: Gastrointestinal stoma complication
     Dosage: UNK
     Route: 065
  2. ATROPINE [Suspect]
     Active Substance: ATROPINE
     Indication: Gastrointestinal stoma complication
     Dosage: UNK
     Route: 065
  3. CLONIDINE [Suspect]
     Active Substance: CLONIDINE
     Indication: Gastrointestinal stoma complication
     Dosage: UNK
     Route: 065
  4. OPIUM TINCTURE [Suspect]
     Active Substance: MORPHINE
     Indication: Gastrointestinal stoma complication
     Dosage: UNK
     Route: 065
  5. CHOLESTYRAMINE [Suspect]
     Active Substance: CHOLESTYRAMINE
     Indication: Gastrointestinal stoma complication
     Dosage: UNK
     Route: 065
  6. OCTREOTIDE [Suspect]
     Active Substance: OCTREOTIDE
     Indication: Gastrointestinal stoma complication
     Dosage: UNK
     Route: 065

REACTIONS (1)
  - Drug ineffective for unapproved indication [Unknown]
